FAERS Safety Report 9238634 (Version 2)
Quarter: 2013Q2

REPORT INFORMATION
  Report Type: Spontaneous
  Country: US (occurrence: None)
  Receive Date: 20130416
  Receipt Date: 20130506
  Transmission Date: 20140414
  Serious: Yes (Hospitalization, Other)
  Sender: FDA-Public Use
  Company Number: TPA2013A02748

PATIENT
  Age: 56 Year
  Sex: Male
  Weight: 126.55 kg

DRUGS (5)
  1. EDARBYCLOR [Suspect]
     Indication: HYPERTENSION
     Dosage: 1 IN 1 D, PER ORAL
     Route: 048
  2. HCTZ (HYDROCHLOROTHIAZIDE) [Concomitant]
  3. LISINOPRIL (LISINOPRIL) [Concomitant]
  4. AMLODIPINE (AMLODIPINE) [Concomitant]
  5. UNKNOWN MEDICATIONS (ALL OTHER THERAPEUTIC PRODUCTS) [Concomitant]

REACTIONS (3)
  - Cerebrovascular accident [None]
  - Overdose [None]
  - Blood pressure increased [None]
